FAERS Safety Report 21734552 (Version 1)
Quarter: 2022Q4

REPORT INFORMATION
  Report Type: Spontaneous
  Country: IN (occurrence: IN)
  Receive Date: 20221215
  Receipt Date: 20221215
  Transmission Date: 20230112
  Serious: Yes (Other)
  Sender: FDA-Public Use
  Company Number: IN-002147023-NVSC2022IN288838

PATIENT
  Age: 77 Year
  Sex: Female

DRUGS (1)
  1. BROLUCIZUMAB [Suspect]
     Active Substance: BROLUCIZUMAB
     Indication: Polypoidal choroidal vasculopathy
     Dosage: 0.05 ML, PRN (AS NEEDED, IN RIGHT EYE)
     Route: 047
     Dates: start: 20221121

REACTIONS (2)
  - Idiopathic orbital inflammation [Recovered/Resolved with Sequelae]
  - Product use in unapproved indication [Unknown]

NARRATIVE: CASE EVENT DATE: 20221121
